FAERS Safety Report 15862679 (Version 1)
Quarter: 2019Q1

REPORT INFORMATION
  Report Type: Spontaneous
  Country: FR (occurrence: FR)
  Receive Date: 20190124
  Receipt Date: 20190124
  Transmission Date: 20190417
  Serious: Yes (Other)
  Sender: FDA-Public Use
  Company Number: FR-PFIZER INC-2019032603

PATIENT
  Age: 70 Year
  Sex: Male

DRUGS (12)
  1. ESTRACYT [Suspect]
     Active Substance: ESTRAMUSTINE PHOSPHATE SODIUM
     Indication: PROSTATE CANCER
     Dosage: 560 MG, DAILY
     Route: 048
     Dates: start: 201805
  2. EFFERALGAN [PARACETAMOL] [Concomitant]
     Dosage: 1 DF,EVERY 8 HOURS
     Route: 048
  3. PRIMPERAN COMPLEX [DIMETICONE;METOCLOPRAMIDE HYDROCHLORIDE] [Concomitant]
     Dosage: 1 DF, AS NEEDED
     Route: 048
  4. DECAPEPTYL (ACETATE) [Concomitant]
     Active Substance: TRIPTORELIN ACETATE
     Dosage: 1 DF, EVERY 6 MONTHS
     Route: 030
  5. LOVENOX [Concomitant]
     Active Substance: ENOXAPARIN SODIUM
     Dosage: 1 DF, AS NEEDED
     Route: 048
  6. PRIMPERAN COMPLEX [DIMETICONE;METOCLOPRAMIDE HYDROCHLORIDE] [Concomitant]
     Dosage: 1 DF, AS NEEDED
     Route: 048
  7. LOVENOX [Concomitant]
     Active Substance: ENOXAPARIN SODIUM
     Dosage: 0.4 ML, DAILY
     Route: 058
  8. EFFERALGAN [PARACETAMOL] [Concomitant]
     Dosage: 1 DF, AS NEEDED
     Route: 048
  9. EFFERALGAN [PARACETAMOL] [Concomitant]
     Dosage: 1 G, EVERY 8 HOURS
     Route: 048
  10. PRIMPERAN COMPLEX [DIMETICONE;METOCLOPRAMIDE HYDROCHLORIDE] [Concomitant]
     Dosage: 1 G, EVERY 8 HOURS
     Route: 048
  11. LEVOTHYROX [Concomitant]
     Active Substance: LEVOTHYROXINE
     Dosage: 1 DF, DAILY
     Route: 048
  12. LOVENOX [Concomitant]
     Active Substance: ENOXAPARIN SODIUM
     Dosage: 1 G, EVERY 8 HOURS
     Route: 048

REACTIONS (3)
  - Malaise [Not Recovered/Not Resolved]
  - Loss of consciousness [Not Recovered/Not Resolved]
  - Nuclear magnetic resonance imaging abnormal [Not Recovered/Not Resolved]

NARRATIVE: CASE EVENT DATE: 20181210
